FAERS Safety Report 13385460 (Version 14)
Quarter: 2021Q1

REPORT INFORMATION
  Report Type: Spontaneous
  Country: US (occurrence: US)
  Receive Date: 20170330
  Receipt Date: 20210203
  Transmission Date: 20210419
  Serious: Yes (Hospitalization, Other)
  Sender: FDA-Public Use
  Company Number: US-INCYTE CORPORATION-2017IN002211

PATIENT

DRUGS (11)
  1. IBUPROFEN. [Concomitant]
     Active Substance: IBUPROFEN
     Indication: PRODUCT USED FOR UNKNOWN INDICATION
     Dosage: PRN
     Route: 065
  2. BYSTOLIC [Concomitant]
     Active Substance: NEBIVOLOL HYDROCHLORIDE
     Indication: PRODUCT USED FOR UNKNOWN INDICATION
     Dosage: UNK
     Route: 065
  3. BABY ASPIRIN [Concomitant]
     Active Substance: ASPIRIN
     Indication: PRODUCT USED FOR UNKNOWN INDICATION
     Dosage: UNK
     Route: 065
  4. JAKAFI [Suspect]
     Active Substance: RUXOLITINIB
     Dosage: 15 MG, BID
     Route: 048
  5. ALLOPURINOL. [Concomitant]
     Active Substance: ALLOPURINOL
     Indication: PRODUCT USED FOR UNKNOWN INDICATION
     Dosage: UNK
     Route: 065
  6. JAKAFI [Suspect]
     Active Substance: RUXOLITINIB
     Dosage: 15 MG, BID
     Route: 048
     Dates: start: 20160514
  7. JAKAFI [Suspect]
     Active Substance: RUXOLITINIB
     Dosage: 15 MG, BID
     Route: 048
  8. JAKAFI [Suspect]
     Active Substance: RUXOLITINIB
     Dosage: 15 MILLIGRAM, BID
     Route: 048
     Dates: start: 2016
  9. CITALOPRAM [Concomitant]
     Active Substance: CITALOPRAM HYDROBROMIDE
     Indication: PRODUCT USED FOR UNKNOWN INDICATION
     Dosage: UNK
     Route: 065
  10. JAKAFI [Suspect]
     Active Substance: RUXOLITINIB
     Indication: POLYCYTHAEMIA VERA
     Dosage: 10 MG, BID
     Route: 048
     Dates: start: 20160514
  11. AMLODIPINE [Concomitant]
     Active Substance: AMLODIPINE BESYLATE
     Indication: PRODUCT USED FOR UNKNOWN INDICATION
     Route: 065

REACTIONS (33)
  - Liver function test increased [Recovered/Resolved]
  - Head injury [Recovered/Resolved]
  - Chills [Recovered/Resolved]
  - Gene mutation [Recovered/Resolved]
  - Hepatic function abnormal [Unknown]
  - Weight increased [Recovering/Resolving]
  - Fatigue [Unknown]
  - Hypertension [Unknown]
  - Blood count abnormal [Recovered/Resolved]
  - Liver disorder [Recovered/Resolved]
  - Blood uric acid increased [Recovered/Resolved]
  - Malaise [Recovered/Resolved]
  - Rib fracture [Recovered/Resolved]
  - Product dose omission issue [Unknown]
  - Fall [Recovered/Resolved]
  - Hepatic steatosis [Unknown]
  - Eyelid disorder [Recovered/Resolved]
  - Traumatic lung injury [Recovered/Resolved]
  - Influenza [Recovered/Resolved]
  - Abscess oral [Recovered/Resolved]
  - Gout [Recovered/Resolved]
  - Disease progression [Recovered/Resolved]
  - Exercise lack of [Recovered/Resolved]
  - Sleep disorder [Recovered/Resolved]
  - Dehydration [Recovered/Resolved]
  - Hepatic cirrhosis [Recovered/Resolved]
  - Arthralgia [Unknown]
  - Overweight [Recovered/Resolved]
  - Polycythaemia vera [Recovered/Resolved]
  - Gingivitis [Recovered/Resolved]
  - Tooth extraction [Recovered/Resolved]
  - Skin laceration [Recovered/Resolved]
  - Janus kinase 2 mutation [Recovered/Resolved]

NARRATIVE: CASE EVENT DATE: 20170314
